FAERS Safety Report 17162902 (Version 1)
Quarter: 2019Q4

REPORT INFORMATION
  Report Type: Other
  Country: FR (occurrence: FR)
  Receive Date: 20191217
  Receipt Date: 20191217
  Transmission Date: 20200122
  Serious: Yes (Hospitalization)
  Sender: FDA-Public Use
  Company Number: FR-DENTSPLY-2019SCDP000661

PATIENT
  Age: 63 Year
  Sex: Male

DRUGS (2)
  1. XYLOCAINE WITH ADRENALINE (EPINEPHRINE) [Suspect]
     Active Substance: EPINEPHRINE BITARTRATE\LIDOCAINE HYDROCHLORIDE
     Indication: JOINT INJECTION
     Dosage: TOTAL
     Route: 014
     Dates: start: 20170406, end: 20170406
  2. HEXATRIONE [Suspect]
     Active Substance: TRIAMCINOLONE HEXACETONIDE
     Indication: JOINT INJECTION
     Dosage: 2 GRAM, TOTAL
     Route: 014
     Dates: start: 20170406, end: 20170406

REACTIONS (3)
  - Face oedema [Recovered/Resolved]
  - Myoclonus [Recovered/Resolved]
  - Loss of consciousness [Recovered/Resolved]

NARRATIVE: CASE EVENT DATE: 20170406
